APPROVED DRUG PRODUCT: PROMETHAZINE HYDROCHLORIDE AND CODEINE PHOSPHATE
Active Ingredient: CODEINE PHOSPHATE; PROMETHAZINE HYDROCHLORIDE
Strength: 10MG/5ML;6.25MG/5ML **Federal Register determination that product was not discontinued or withdrawn for safety or effectiveness reasons**
Dosage Form/Route: SYRUP;ORAL
Application: A088763 | Product #001
Applicant: ACTAVIS MID ATLANTIC LLC
Approved: Oct 31, 1984 | RLD: Yes | RS: No | Type: DISCN